FAERS Safety Report 6459987-8 (Version None)
Quarter: 2009Q4

REPORT INFORMATION
  Report Type: 
  Country: None (occurrence: None)
  Receive Date: 20091129
  Receipt Date: 20091117
  Transmission Date: 20100525
  Serious: Yes (Other)
  Sender: FDA-Public Use
  Company Number: PHHY2009MX50497

PATIENT
  Age: 66 Year
  Sex: Female

DRUGS (1)
  1. ACLASTA [Suspect]
     Indication: OSTEOPOROSIS
     Dosage: 1 AMPOULE PER YEAR
     Route: 042
     Dates: start: 20081011

REACTIONS (2)
  - ANGIOPLASTY [None]
  - INFARCTION [None]
